FAERS Safety Report 15435626 (Version 1)
Quarter: 2018Q3

REPORT INFORMATION
  Report Type: Spontaneous
  Country: CZ (occurrence: CZ)
  Receive Date: 20180927
  Receipt Date: 20180927
  Transmission Date: 20181010
  Serious: Yes (Death, Life-Threatening, Hospitalization, Other)
  Sender: FDA-Public Use
  Company Number: CZ-BAXTER-2018BAX024133

PATIENT
  Age: 87 Year
  Sex: Female

DRUGS (1)
  1. HOLOXAN 2 G [Suspect]
     Active Substance: IFOSFAMIDE
     Indication: LEIOMYOSARCOMA
     Dosage: 29.8.18 STARTED SECOND LINE OF PALLIATIVE CHEMOTHERAPY
     Route: 065
     Dates: start: 20180829

REACTIONS (4)
  - Acute kidney injury [Fatal]
  - Pneumonia [Fatal]
  - Haematotoxicity [Fatal]
  - Subileus [Fatal]

NARRATIVE: CASE EVENT DATE: 20180905
